FAERS Safety Report 4477747-4 (Version None)
Quarter: 2004Q4

REPORT INFORMATION
  Report Type: 
  Country: None (occurrence: None)
  Receive Date: 20041014
  Receipt Date: 20041005
  Transmission Date: 20050328
  Serious: Yes (Other)
  Sender: FDA-Public Use
  Company Number: US-JNJFOC-20041001651

PATIENT

DRUGS (1)
  1. PEPCID AC [Suspect]

REACTIONS (1)
  - DEPENDENCE [None]
